FAERS Safety Report 20595667 (Version 1)
Quarter: 2022Q1

REPORT INFORMATION
  Report Type: Spontaneous
  Country: US (occurrence: None)
  Receive Date: 20220315
  Receipt Date: 20220315
  Transmission Date: 20220423
  Serious: Yes (Hospitalization)
  Sender: FDA-Public Use
  Company Number: None

PATIENT
  Age: 29 Year
  Sex: Male
  Weight: 80 kg

DRUGS (6)
  1. ONCASPAR [Suspect]
     Active Substance: PEGASPARGASE
     Dates: end: 20220307
  2. VINCRISTINE SULFATE [Suspect]
     Active Substance: VINCRISTINE SULFATE
     Dates: start: 20220304
  3. CYTARABINE [Suspect]
     Active Substance: CYTARABINE
     Dates: end: 20220304
  4. DEXAMETHASONE [Suspect]
     Active Substance: DEXAMETHASONE
     Dates: end: 20220310
  5. DAUNORUBICIN [Suspect]
     Active Substance: DAUNORUBICIN
     Dates: end: 20220304
  6. DAUNORUBICIN [Suspect]
     Active Substance: DAUNORUBICIN

REACTIONS (5)
  - Pain [None]
  - Hypoaesthesia [None]
  - Muscular weakness [None]
  - Enterobacter bacteraemia [None]
  - Headache [None]

NARRATIVE: CASE EVENT DATE: 20220312
